FAERS Safety Report 8956832 (Version 2)
Quarter: 2013Q1

REPORT INFORMATION
  Report Type: Spontaneous
  Country: US (occurrence: US)
  Receive Date: 20121210
  Receipt Date: 20130203
  Transmission Date: 20140127
  Serious: No
  Sender: FDA-Public Use
  Company Number: US-CELGENEUS-163-21880-12113976

PATIENT
  Sex: Male

DRUGS (5)
  1. REVLIMID [Suspect]
     Indication: PLASMA CELL MYELOMA
     Dosage: 25 MILLIGRAM
     Route: 048
     Dates: start: 20120112
  2. DEXAMETHASONE [Concomitant]
     Indication: PRODUCT USED FOR UNKNOWN INDICATION
     Dosage: 40 MILLIGRAM
     Route: 065
     Dates: start: 201201
  3. DEXAMETHASONE [Concomitant]
     Dosage: 24 MILLIGRAM
     Route: 065
  4. PEPCID AC [Concomitant]
     Indication: PRODUCT USED FOR UNKNOWN INDICATION
     Dosage: 10 MILLIGRAM
     Route: 048
  5. VELCADE [Concomitant]
     Indication: PLASMA CELL MYELOMA
     Dosage: 2.5 MILLIGRAM
     Route: 065

REACTIONS (2)
  - Plasma cell myeloma [Unknown]
  - Full blood count decreased [Unknown]
